FAERS Safety Report 16618919 (Version 1)
Quarter: 2019Q3

REPORT INFORMATION
  Report Type: Spontaneous
  Country: NL (occurrence: NL)
  Receive Date: 20190723
  Receipt Date: 20190723
  Transmission Date: 20191004
  Serious: Yes (Hospitalization)
  Sender: FDA-Public Use
  Company Number: PHHY2019NL168531

PATIENT
  Sex: Male

DRUGS (3)
  1. NAPROXEN. [Suspect]
     Active Substance: NAPROXEN
     Indication: GOUT
     Dosage: UNK
     Route: 065
  2. COLCHICINE. [Suspect]
     Active Substance: COLCHICINE
     Indication: GOUT
     Dosage: 5 MG, Q8H (3D1T)
     Route: 065
     Dates: start: 20190611
  3. PREDNISOLON [Suspect]
     Active Substance: PREDNISOLONE
     Indication: GOUT
     Dosage: UNK
     Route: 065

REACTIONS (2)
  - Atrial fibrillation [Recovering/Resolving]
  - Cardiac failure [Recovering/Resolving]
